FAERS Safety Report 7684434-8 (Version None)
Quarter: 2011Q3

REPORT INFORMATION
  Report Type: 
  Country: None (occurrence: None)
  Receive Date: 20110816
  Receipt Date: 20110805
  Transmission Date: 20111222
  Serious: No
  Sender: FDA-Public Use
  Company Number: US-BIOGENIDEC-2011BI000431

PATIENT
  Age: 58 Year
  Sex: Female

DRUGS (1)
  1. TYSABRI [Suspect]
     Indication: MULTIPLE SCLEROSIS
     Route: 042
     Dates: start: 20060914, end: 20101110

REACTIONS (6)
  - ANXIETY [None]
  - ORAL PAIN [None]
  - VIRAL INFECTION [None]
  - ORAL VIRAL INFECTION [None]
  - STOMATITIS [None]
  - SJOGREN'S SYNDROME [None]
